FAERS Safety Report 8595211-8 (Version None)
Quarter: 2012Q3

REPORT INFORMATION
  Report Type: 
  Country: None (occurrence: None)
  Receive Date: 20120815
  Receipt Date: 20120808
  Transmission Date: 20120928
  Serious: Yes (Hospitalization)
  Sender: FDA-Public Use
  Company Number: JP-ABBOTT-12P-087-0965950-00

PATIENT
  Sex: Female

DRUGS (9)
  1. NORVIR [Suspect]
     Indication: HIV INFECTION
     Route: 048
     Dates: start: 20050106, end: 20110530
  2. EPIVIR [Concomitant]
     Route: 048
     Dates: start: 20050106, end: 20110530
  3. EPIVIR [Concomitant]
     Indication: HIV INFECTION
     Route: 048
     Dates: start: 20041214, end: 20041230
  4. REYATAZ [Suspect]
     Indication: HIV INFECTION
     Route: 048
     Dates: start: 20050106, end: 20110530
  5. EPZICOM [Concomitant]
     Indication: HIV INFECTION
     Route: 048
     Dates: start: 20110531
  6. CANDESARTAN CILEXETIL [Concomitant]
     Indication: HYPERTENSION
     Route: 048
     Dates: start: 20040401
  7. ZYRTEC [Concomitant]
     Indication: RHINITIS
     Route: 048
     Dates: start: 20050906
  8. VIREAD [Suspect]
     Indication: HIV INFECTION
     Route: 048
     Dates: start: 20050106, end: 20110530
  9. ISENTRESS [Concomitant]
     Indication: HIV INFECTION
     Route: 048
     Dates: start: 20110531

REACTIONS (3)
  - RENAL IMPAIRMENT [None]
  - DIARRHOEA [None]
  - DEHYDRATION [None]
